FAERS Safety Report 21905022 (Version 1)
Quarter: 2023Q1

REPORT INFORMATION
  Report Type: Spontaneous
  Country: CN (occurrence: CN)
  Receive Date: 20230124
  Receipt Date: 20230124
  Transmission Date: 20230417
  Serious: Yes (Other)
  Sender: FDA-Public Use
  Company Number: CN-PFIZER INC-PV202300013384

PATIENT
  Age: 17 Year
  Sex: Female

DRUGS (2)
  1. METHYLPREDNISOLONE [Suspect]
     Active Substance: METHYLPREDNISOLONE
     Indication: Connective tissue disorder
     Dosage: 500 MG, 3X/DAY
     Dates: start: 2022
  2. METHYLPREDNISOLONE [Suspect]
     Active Substance: METHYLPREDNISOLONE
     Indication: Neuropathy peripheral

REACTIONS (2)
  - Drug ineffective [Unknown]
  - Haemophagocytic lymphohistiocytosis [Unknown]

NARRATIVE: CASE EVENT DATE: 20220101
